FAERS Safety Report 8047479-4 (Version None)
Quarter: 2012Q1

REPORT INFORMATION
  Report Type: 
  Country: None (occurrence: None)
  Receive Date: 20120116
  Receipt Date: 20120111
  Transmission Date: 20120608
  Serious: No
  Sender: FDA-Public Use
  Company Number: US-BAYER-2012-003724

PATIENT
  Age: 24 Year
  Sex: Female

DRUGS (3)
  1. UNKNOWN [Concomitant]
     Indication: RHEUMATOID ARTHRITIS
     Dosage: UNK
  2. MIRENA [Suspect]
     Indication: CONTRACEPTION
     Dosage: 20 MCG/24HR, CONT
     Route: 015
     Dates: start: 20081001
  3. UNKNOWN [Concomitant]
     Indication: SYSTEMIC LUPUS ERYTHEMATOSUS

REACTIONS (2)
  - AMENORRHOEA [None]
  - POLYMENORRHOEA [None]
